FAERS Safety Report 15327260 (Version 3)
Quarter: 2018Q3

REPORT INFORMATION
  Report Type: Report from Study
  Country: CA (occurrence: CA)
  Receive Date: 20180828
  Receipt Date: 20180928
  Transmission Date: 20181010
  Serious: Yes (Hospitalization)
  Sender: FDA-Public Use
  Company Number: CA-TAKEDA-2018TUS025684

PATIENT
  Age: 20 Year
  Sex: Female

DRUGS (2)
  1. PREDNISONE. [Concomitant]
     Active Substance: PREDNISONE
     Dosage: UNK
  2. VEDOLIZUMAB [Suspect]
     Active Substance: VEDOLIZUMAB
     Indication: CROHN^S DISEASE
     Dosage: 300 MG, UNK
     Route: 042
     Dates: start: 20180802

REACTIONS (5)
  - Scar [Unknown]
  - Ulcer haemorrhage [Unknown]
  - Skin ulcer [Recovering/Resolving]
  - Urinary tract infection [Unknown]
  - Kidney infection [Unknown]

NARRATIVE: CASE EVENT DATE: 201808
